FAERS Safety Report 5922306-7 (Version None)
Quarter: 2008Q4

REPORT INFORMATION
  Report Type: 
  Country: None (occurrence: None)
  Receive Date: 20081017
  Receipt Date: 20081010
  Transmission Date: 20090506
  Serious: Yes (Hospitalization)
  Sender: FDA-Public Use
  Company Number: JP-ABBOTT-08P-087-0461214-02

PATIENT
  Sex: Female
  Weight: 52 kg

DRUGS (24)
  1. HUMIRA [Suspect]
     Indication: RHEUMATOID ARTHRITIS
     Route: 058
     Dates: start: 20051005, end: 20080611
  2. LOXOPROFEN [Concomitant]
     Indication: RHEUMATOID ARTHRITIS
     Route: 048
     Dates: start: 20070711
  3. PREDNISOLONE [Concomitant]
     Indication: RHEUMATOID ARTHRITIS
     Route: 048
     Dates: start: 20070808
  4. OLOPATADINE HYDROCHLORIDE [Concomitant]
     Indication: RASH
     Route: 048
     Dates: start: 20050127, end: 20061119
  5. KETOPROFEN [Concomitant]
     Indication: RHEUMATOID ARTHRITIS
     Route: 048
     Dates: start: 20041104
  6. COMBAREN [Concomitant]
     Indication: RHEUMATOID ARTHRITIS
     Route: 048
     Dates: start: 20040811, end: 20041006
  7. COMBAREN [Concomitant]
     Route: 048
     Dates: start: 20050421, end: 20051005
  8. FOLIC ACID [Concomitant]
     Indication: RHEUMATOID ARTHRITIS
     Route: 048
  9. FOLIC ACID [Concomitant]
     Indication: VITAMIN SUPPLEMENTATION
  10. SOFALCONE [Concomitant]
     Indication: GASTRITIS PROPHYLAXIS
     Route: 048
  11. OMEPRAZOLE [Concomitant]
     Indication: GASTRITIS PROPHYLAXIS
     Route: 048
     Dates: end: 20040707
  12. RABEPRAZOLE SODIUM [Concomitant]
     Indication: GASTRITIS PROPHYLAXIS
     Route: 048
     Dates: start: 20040708
  13. ALENDRONIC ACID [Concomitant]
     Indication: OSTEOPOROSIS
     Route: 048
     Dates: end: 20040707
  14. ALENDRONATE SODIUM [Concomitant]
     Indication: OSTEOPOROSIS
     Route: 048
     Dates: start: 20040708
  15. GLIMEPIRIDE [Concomitant]
     Indication: DIABETES MELLITUS
     Route: 048
  16. BARNIDIPINE [Concomitant]
     Indication: HYPERTENSION
     Route: 048
     Dates: end: 20051119
  17. LIMAPROST [Concomitant]
     Indication: LUMBAR SPINAL STENOSIS
     Route: 048
     Dates: end: 20061029
  18. FOLIC ACID [Concomitant]
     Indication: DRUG USE FOR UNKNOWN INDICATION
     Dates: end: 20040714
  19. FOLIC ACID [Concomitant]
  20. METHOTREXATE [Concomitant]
     Indication: RHEUMATOID ARTHRITIS
     Route: 048
     Dates: end: 20040714
  21. ZOLPIDEM TARTRATE [Concomitant]
     Indication: INSOMNIA
     Route: 048
     Dates: end: 20061029
  22. TERBINAFINE HCL [Concomitant]
     Indication: ONYCHOMYCOSIS
     Route: 048
     Dates: start: 20060411
  23. BARNIDIPINE [Concomitant]
     Route: 048
     Dates: start: 20080623
  24. SOFALCONE [Concomitant]
     Route: 048
     Dates: start: 20070711

REACTIONS (4)
  - ANAEMIA [None]
  - DUODENAL ULCER [None]
  - LEUKOCYTOSIS [None]
  - PYELONEPHRITIS ACUTE [None]
